FAERS Safety Report 4549192-4 (Version None)
Quarter: 2005Q1

REPORT INFORMATION
  Report Type: 
  Country: None (occurrence: None)
  Receive Date: 20050111
  Receipt Date: 20050103
  Transmission Date: 20050727
  Serious: Yes (Disabling, Other)
  Sender: FDA-Public Use
  Company Number: US-JNJFOC-20050100714

PATIENT
  Age: 53 Year

DRUGS (4)
  1. REMICADE [Suspect]
     Indication: RHEUMATOID ARTHRITIS
     Route: 042
  2. PREDNISON [Concomitant]
  3. NEURONTIN [Concomitant]
  4. MUSCLE RELAXER [Concomitant]

REACTIONS (7)
  - CATARACT [None]
  - FATIGUE [None]
  - FIBROMYALGIA [None]
  - PAIN [None]
  - RHEUMATOID ARTHRITIS [None]
  - SJOGREN'S SYNDROME [None]
  - UVEITIS [None]
